FAERS Safety Report 24243676 (Version 1)
Quarter: 2024Q3

REPORT INFORMATION
  Report Type: Spontaneous
  Country: US (occurrence: None)
  Receive Date: 20240823
  Receipt Date: 20240823
  Transmission Date: 20241016
  Serious: Yes (Other)
  Sender: Public
  Company Number: None

PATIENT
  Age: 29 Year
  Sex: Female
  Weight: 135 kg

DRUGS (1)
  1. ZEPBOUND [Suspect]
     Active Substance: TIRZEPATIDE
     Indication: Weight decreased
     Dosage: 4 INJECTIONS ONCE A WEEK
     Route: 050
     Dates: start: 20240708, end: 20240708

REACTIONS (7)
  - Therapy change [None]
  - Drug ineffective [None]
  - Suicidal ideation [None]
  - Obsessive-compulsive disorder [None]
  - Abdominal pain upper [None]
  - Impaired driving ability [None]
  - Therapy cessation [None]

NARRATIVE: CASE EVENT DATE: 20240708
